FAERS Safety Report 22165632 (Version 2)
Quarter: 2023Q2

REPORT INFORMATION
  Report Type: Spontaneous
  Country: FR (occurrence: FR)
  Receive Date: 20230403
  Receipt Date: 20230410
  Transmission Date: 20230721
  Serious: Yes (Other)
  Sender: FDA-Public Use
  Company Number: None

PATIENT
  Age: 68 Year
  Sex: Male
  Weight: 89 kg

DRUGS (3)
  1. DOXYCYCLINE [Suspect]
     Active Substance: DOXYCYCLINE
     Indication: Osteitis
     Dosage: 200 MG, QD
     Route: 048
     Dates: start: 20230109, end: 20230208
  2. SIVEXTRO [Suspect]
     Active Substance: TEDIZOLID PHOSPHATE
     Indication: Osteitis
     Dosage: 1 DOSAGE FORM, QD
     Route: 048
     Dates: start: 20230109, end: 20230220
  3. LINEZOLID [Concomitant]
     Active Substance: LINEZOLID
     Indication: Osteitis
     Dosage: 1200 MG, QD (600MG*2/JR)
     Route: 048
     Dates: start: 20221229, end: 20230110

REACTIONS (2)
  - Platelet count decreased [Not Recovered/Not Resolved]
  - Anaemia [Not Recovered/Not Resolved]

NARRATIVE: CASE EVENT DATE: 20230209
